FAERS Safety Report 24172587 (Version 1)
Quarter: 2024Q3

REPORT INFORMATION
  Report Type: Report from Study
  Country: US (occurrence: None)
  Receive Date: 20240805
  Receipt Date: 20240805
  Transmission Date: 20241016
  Serious: Yes (Other)
  Sender: ASTRAZENECA
  Company Number: 2021A805637

PATIENT
  Sex: Female
  Weight: 48.5 kg

DRUGS (1)
  1. TAGRISSO [Suspect]
     Active Substance: OSIMERTINIB
     Indication: Metastases to lung
     Route: 048
     Dates: start: 20210903

REACTIONS (5)
  - Nephrolithiasis [Unknown]
  - Urinary bladder haemorrhage [Unknown]
  - Sensitive skin [Unknown]
  - Wound [Unknown]
  - Dry skin [Unknown]
